FAERS Safety Report 4380513-1 (Version None)
Quarter: 2004Q2

REPORT INFORMATION
  Report Type: 
  Country: None (occurrence: None)
  Receive Date: 20040614
  Receipt Date: 20040601
  Transmission Date: 20050107
  Serious: Yes (Hospitalization)
  Sender: FDA-Public Use
  Company Number: 198978

PATIENT
  Age: 18 Year
  Sex: Female

DRUGS (1)
  1. AVONEX ^BIOGEN^ [Suspect]
     Indication: MULTIPLE SCLEROSIS
     Dates: start: 20040507

REACTIONS (2)
  - SPEECH DISORDER [None]
  - TREMOR [None]
